FAERS Safety Report 9914732 (Version 3)
Quarter: 2014Q3

REPORT INFORMATION
  Report Type: Report from Study
  Country: DE (occurrence: DE)
  Receive Date: 20140220
  Receipt Date: 20140919
  Transmission Date: 20150326
  Serious: Yes (Death, Other)
  Sender: FDA-Public Use
  Company Number: FR-SA-2014SA017376

PATIENT
  Age: 6 Year
  Sex: Female
  Weight: 20 kg

DRUGS (6)
  1. ETOPOSIDE. [Suspect]
     Active Substance: ETOPOSIDE
     Indication: ACUTE LYMPHOCYTIC LEUKAEMIA
     Route: 065
     Dates: start: 20130731, end: 20130802
  2. ENALAPRIL [Concomitant]
     Active Substance: ENALAPRIL
     Indication: HYPERTENSION
     Dosage: DOSE: 5 MG OR 2.5 MG?REGIMEN: MONDAY AND EVENING
     Route: 048
     Dates: start: 201205, end: 20130819
  3. AMBISOME [Concomitant]
     Active Substance: AMPHOTERICIN B
     Indication: INFECTION
     Dosage: REGIMEN: MONDAY/ WEDNESDAY
     Route: 042
     Dates: start: 20130624, end: 20130819
  4. VANCOMYCIN [Concomitant]
     Active Substance: VANCOMYCIN
     Indication: INFECTION
     Route: 042
     Dates: start: 20130613, end: 20130819
  5. EVOLTRA [Suspect]
     Active Substance: CLOFARABINE
     Indication: ACUTE LYMPHOCYTIC LEUKAEMIA
     Dosage: NUMBER OF DOSES GIVEN: 05
     Route: 065
     Dates: start: 20130731, end: 20130804
  6. CYCLOPHOSPHAMIDE. [Suspect]
     Active Substance: CYCLOPHOSPHAMIDE
     Indication: ACUTE LYMPHOCYTIC LEUKAEMIA
     Route: 065
     Dates: start: 20130731, end: 20130802

REACTIONS (3)
  - Blood creatinine increased [Not Recovered/Not Resolved]
  - Multi-organ failure [Fatal]
  - Renal failure acute [Not Recovered/Not Resolved]

NARRATIVE: CASE EVENT DATE: 20130805
